FAERS Safety Report 9836364 (Version 2)
Quarter: 2014Q1

REPORT INFORMATION
  Report Type: Spontaneous
  Country: US (occurrence: US)
  Receive Date: 20140123
  Receipt Date: 20140210
  Transmission Date: 20141002
  Serious: No
  Sender: FDA-Public Use
  Company Number: US-BIOGENIDEC-2014BI006603

PATIENT
  Age: 51 Year
  Sex: Female

DRUGS (1)
  1. TYSABRI [Suspect]
     Indication: MULTIPLE SCLEROSIS
     Route: 042
     Dates: start: 20070504

REACTIONS (5)
  - Feeling abnormal [Recovered/Resolved]
  - Chronic obstructive pulmonary disease [Recovered/Resolved]
  - Mental impairment [Not Recovered/Not Resolved]
  - Bronchitis [Recovered/Resolved]
  - Multiple sclerosis relapse [Recovered/Resolved]
